FAERS Safety Report 7528648-6 (Version None)
Quarter: 2011Q2

REPORT INFORMATION
  Report Type: 
  Country: None (occurrence: None)
  Receive Date: 20110607
  Receipt Date: 20110602
  Transmission Date: 20111010
  Serious: Yes (Other)
  Sender: FDA-Public Use
  Company Number: CN-PFIZER INC-2011119301

PATIENT
  Sex: Female

DRUGS (1)
  1. CYTOTEC [Suspect]
     Indication: ABORTION INDUCED

REACTIONS (3)
  - HYSTERECTOMY [None]
  - UTERINE HAEMORRHAGE [None]
  - DRUG INEFFECTIVE FOR UNAPPROVED INDICATION [None]
